FAERS Safety Report 23946233 (Version 1)
Quarter: 2024Q2

REPORT INFORMATION
  Report Type: Report from Study
  Country: FR (occurrence: FR)
  Receive Date: 20240606
  Receipt Date: 20240606
  Transmission Date: 20240716
  Serious: Yes (Other)
  Sender: FDA-Public Use
  Company Number: FR-DSJP-DSE-2024-124822

PATIENT
  Sex: Female

DRUGS (5)
  1. ENHERTU [Suspect]
     Active Substance: FAM-TRASTUZUMAB DERUXTECAN-NXKI
     Indication: HER2 low breast cancer
     Dosage: UNK, CYCLIC
     Route: 065
  2. ENHERTU [Suspect]
     Active Substance: FAM-TRASTUZUMAB DERUXTECAN-NXKI
     Indication: Breast cancer metastatic
     Dosage: 4.4 MG/KG, CYCLIC
     Route: 065
     Dates: end: 20231123
  3. ENHERTU [Suspect]
     Active Substance: FAM-TRASTUZUMAB DERUXTECAN-NXKI
     Dosage: 4.4 MG/KG, CYCLIC
     Route: 065
     Dates: start: 20231130
  4. ENHERTU [Suspect]
     Active Substance: FAM-TRASTUZUMAB DERUXTECAN-NXKI
     Dosage: 4.4 MG/KG, CYCLIC
     Route: 065
     Dates: start: 20231227
  5. UNSPECIFIED INGREDIENT [Concomitant]
     Active Substance: UNSPECIFIED INGREDIENT
     Indication: Antiemetic supportive care
     Dosage: UNK
     Route: 065

REACTIONS (2)
  - Pancytopenia [Recovered/Resolved]
  - Neutropenia [Recovered/Resolved]

NARRATIVE: CASE EVENT DATE: 20231123
